FAERS Safety Report 18776112 (Version 1)
Quarter: 2021Q1

REPORT INFORMATION
  Report Type: Spontaneous
  Country: US (occurrence: US)
  Receive Date: 20210123
  Receipt Date: 20210123
  Transmission Date: 20210419
  Serious: No
  Sender: FDA-Public Use
  Company Number: US-009507513-2101USA006948

PATIENT
  Age: 27 Year
  Sex: Female

DRUGS (1)
  1. NEXPLANON [Suspect]
     Active Substance: ETONOGESTREL
     Indication: CONTRACEPTION
     Dosage: ONE IMPLANT EVERY 3 YEARS (IN RIGHT ARM)
     Route: 059
     Dates: start: 20201215, end: 20210112

REACTIONS (1)
  - Implant site infection [Recovering/Resolving]

NARRATIVE: CASE EVENT DATE: 20210112
